FAERS Safety Report 20685816 (Version 1)
Quarter: 2022Q2

REPORT INFORMATION
  Report Type: Spontaneous
  Country: US (occurrence: US)
  Receive Date: 20220407
  Receipt Date: 20220407
  Transmission Date: 20220721
  Serious: No
  Sender: FDA-Public Use
  Company Number: US-PFIZER INC-202200016221

PATIENT
  Age: 60 Year
  Sex: Female

DRUGS (1)
  1. IBRANCE [Suspect]
     Active Substance: PALBOCICLIB
     Dosage: 75 MG, CYCLIC, ONCE DAILY X 21 DAYS, 7 DAYS OFF
     Route: 048
     Dates: start: 20211021

REACTIONS (5)
  - Vomiting [Recovered/Resolved]
  - Abdominal hernia [Unknown]
  - Diarrhoea [Unknown]
  - Liver function test abnormal [Unknown]
  - Jaundice [Unknown]
